FAERS Safety Report 6775197-9 (Version None)
Quarter: 2010Q2

REPORT INFORMATION
  Report Type: 
  Country: None (occurrence: None)
  Receive Date: 20100617
  Receipt Date: 20100607
  Transmission Date: 20101027
  Serious: Yes (Other)
  Sender: FDA-Public Use
  Company Number: FR-PFIZER INC-2010013447

PATIENT
  Age: 70 Year
  Sex: Male
  Weight: 83 kg

DRUGS (8)
  1. SUTENT [Suspect]
     Dosage: 1 DF, 1X/DAY
     Dates: start: 20100101
  2. ENALAPRIL [Concomitant]
     Dosage: 20 MG, 1X/DAY
  3. TAHOR [Concomitant]
     Dosage: 80 MG, 1X/DAY
  4. KARDEGIC [Concomitant]
     Dosage: 75 MG, 1X/DAY
     Dates: start: 20100101
  5. NEBIVOLOL (TEMERIT) [Concomitant]
     Dosage: 5 MG, 1X/DAY
  6. CLOPIDOGREL [Concomitant]
     Dosage: 75 MG, 1X/DAY
     Dates: start: 20100101
  7. NOVORAPID [Concomitant]
     Dosage: 7 IU, 1X/DAY
     Dates: start: 20100101
  8. LANTUS [Concomitant]
     Dosage: 15 IU, 1X/DAY
     Dates: start: 20100101

REACTIONS (5)
  - APHTHOUS STOMATITIS [None]
  - DIARRHOEA [None]
  - ESCHAR [None]
  - FATIGUE [None]
  - HEPATIC PAIN [None]
